FAERS Safety Report 4480177-2 (Version None)
Quarter: 2004Q4

REPORT INFORMATION
  Report Type: 
  Country: None (occurrence: None)
  Receive Date: 20041018
  Receipt Date: 20041007
  Transmission Date: 20050328
  Serious: Yes (Hospitalization)
  Sender: FDA-Public Use
  Company Number: STA-AE-04-MTX-260

PATIENT
  Age: 70 Year
  Sex: Female

DRUGS (9)
  1. METHOTREXATE [Suspect]
     Indication: RHEUMATOID ARTHRITIS
     Dosage: 25 MG 1X PER 5 DAY, ORAL
     Route: 048
  2. LEVOTHYROXINE SODIUM [Concomitant]
  3. NIFEDIPINE [Concomitant]
  4. TICLOPIDINE (TICLOPIDINE) [Concomitant]
  5. FEROUS SULFATE (FERROUS SULFATE) [Concomitant]
  6. FOLIC ACID [Concomitant]
  7. METHYLPREDNISOLONE [Concomitant]
  8. CALCIUM (CALCIUM) [Concomitant]
  9. ALFACALCIDOL (ALFACALCIDOL) [Concomitant]

REACTIONS (18)
  - ABASIA [None]
  - BRADYKINESIA [None]
  - CEREBRAL ATROPHY [None]
  - COMMUNICATION DISORDER [None]
  - DECREASED INTEREST [None]
  - DIARRHOEA [None]
  - DIFFICULTY IN WALKING [None]
  - DYSPHONIA [None]
  - DYSSTASIA [None]
  - ELECTROENCEPHALOGRAM ABNORMAL [None]
  - MASKED FACIES [None]
  - MUSCLE RIGIDITY [None]
  - NUCLEAR MAGNETIC RESONANCE IMAGING BRAIN ABNORMAL [None]
  - PANCYTOPENIA [None]
  - PARKINSON'S DISEASE [None]
  - PARKINSONIAN GAIT [None]
  - RENAL FAILURE ACUTE [None]
  - STOMATITIS [None]
